FAERS Safety Report 8158791-2 (Version None)
Quarter: 2012Q1

REPORT INFORMATION
  Report Type: 
  Country: None (occurrence: None)
  Receive Date: 20120223
  Receipt Date: 20120220
  Transmission Date: 20120608
  Serious: Yes (Other)
  Sender: FDA-Public Use
  Company Number: US-PFIZER INC-2012045097

PATIENT
  Age: 15 Year
  Sex: Female

DRUGS (1)
  1. IBUPROFEN (ADVIL) [Suspect]
     Indication: MEDICAL DEVICE PAIN
     Dosage: UNK
     Route: 048

REACTIONS (4)
  - SWELLING FACE [None]
  - INCORRECT DOSE ADMINISTERED [None]
  - HYPERSENSITIVITY [None]
  - SWOLLEN TONGUE [None]
